FAERS Safety Report 9363322 (Version 1)
Quarter: 2013Q2

REPORT INFORMATION
  Report Type: Spontaneous
  Country: US (occurrence: None)
  Receive Date: 20130621
  Receipt Date: 20130621
  Transmission Date: 20140414
  Serious: Yes (Other)
  Sender: FDA-Public Use
  Company Number: None

PATIENT
  Age: 27 Year
  Sex: Female
  Weight: 53.52 kg

DRUGS (1)
  1. BIAXIN [Suspect]
     Indication: COUGH
     Route: 048
     Dates: start: 20130611, end: 20130620

REACTIONS (3)
  - Hypoglycaemia [None]
  - Anxiety [None]
  - Crying [None]
